FAERS Safety Report 23336746 (Version 1)
Quarter: 2023Q4

REPORT INFORMATION
  Report Type: Spontaneous
  Country: GB (occurrence: GB)
  Receive Date: 20231226
  Receipt Date: 20231226
  Transmission Date: 20240109
  Serious: Yes (Life-Threatening, Disabling, Other)
  Sender: FDA-Public Use
  Company Number: None

PATIENT
  Age: 60 Year
  Weight: 70 kg

DRUGS (1)
  1. ESCITALOPRAM [Suspect]
     Active Substance: ESCITALOPRAM OXALATE
     Indication: Anxiety
     Dosage: ON ALTERNATE DAYS
     Route: 065
     Dates: start: 20231130

REACTIONS (1)
  - Sleep terror [Recovered/Resolved with Sequelae]

NARRATIVE: CASE EVENT DATE: 20231211
